FAERS Safety Report 8835238 (Version 2)
Quarter: 2012Q4

REPORT INFORMATION
  Report Type: 
  Country: US (occurrence: US)
  Receive Date: 20121011
  Receipt Date: 20121031
  Transmission Date: 20130627
  Serious: Yes (Hospitalization)
  Sender: FDA-Public Use
  Company Number: US-ASTRAZENECA-2012SE75939

PATIENT
  Age: 88 Year
  Sex: Female
  Weight: 63.5 kg

DRUGS (11)
  1. CRESTOR [Suspect]
     Indication: BLOOD CHOLESTEROL INCREASED
     Route: 048
     Dates: start: 2010, end: 20120919
  2. BABY ASA [Concomitant]
     Dosage: DAILY
     Route: 048
  3. AMLOPIN [Concomitant]
     Indication: ANGINA PECTORIS
     Route: 048
  4. LORAZEPAM [Concomitant]
     Indication: ANXIETY
     Route: 048
  5. OXYBUTIN [Concomitant]
     Indication: INCONTINENCE
     Dosage: DAILY
     Route: 048
  6. CALCIUM [Concomitant]
     Dosage: DAILY
     Route: 048
  7. BISOP [Concomitant]
     Indication: HYPERTENSION
     Dosage: 2.5/625 DAILY
     Route: 048
  8. ALENDERTEL [Concomitant]
     Indication: OSTEOPOROSIS
     Route: 048
  9. NORVASC [Concomitant]
  10. ZIAC [Concomitant]
     Dosage: 2.5/6.25, OD
  11. FOSOMAX [Concomitant]

REACTIONS (3)
  - Hepatic enzyme increased [Recovered/Resolved]
  - Dehydration [Unknown]
  - Musculoskeletal chest pain [Unknown]
